FAERS Safety Report 6956167-4 (Version None)
Quarter: 2010Q3

REPORT INFORMATION
  Report Type: 
  Country: None (occurrence: None)
  Receive Date: 20100830
  Receipt Date: 20100818
  Transmission Date: 20110219
  Serious: Yes (Other)
  Sender: FDA-Public Use
  Company Number: PHHY2010GB27969

PATIENT
  Sex: Male

DRUGS (6)
  1. CLOZARIL [Suspect]
     Indication: SCHIZOPHRENIA
     Dosage: 675 MG, UNK
     Route: 048
     Dates: start: 20080205, end: 20100422
  2. INTERFERON [Concomitant]
     Indication: HEPATITIS B
  3. CHLORPROMAZINE [Concomitant]
  4. PEGASYS [Concomitant]
     Indication: HEPATITIS C
     Dosage: UNK
     Dates: start: 20091201
  5. RIBAVIRIN [Concomitant]
     Indication: HEPATITIS C
     Dosage: UNK
     Dates: start: 20091201
  6. IBAVIRIN [Concomitant]
     Indication: HEPATITIS B

REACTIONS (11)
  - BLOOD DISORDER [None]
  - CELLULITIS [None]
  - DIABETES MELLITUS [None]
  - HEPATITIS C [None]
  - INFECTION [None]
  - LEUKOPENIA [None]
  - MALAISE [None]
  - MENTAL IMPAIRMENT [None]
  - NEUTROPHIL COUNT DECREASED [None]
  - SCHIZOPHRENIA [None]
  - SKIN ULCER [None]
